FAERS Safety Report 5939055-1 (Version None)
Quarter: 2008Q4

REPORT INFORMATION
  Report Type: 
  Country: None (occurrence: None)
  Receive Date: 20081103
  Receipt Date: 20081103
  Transmission Date: 20090506
  Serious: Yes (Hospitalization)
  Sender: FDA-Public Use
  Company Number: A0754664A

PATIENT
  Age: 37 Year
  Sex: Female

DRUGS (4)
  1. NICODERM [Suspect]
     Indication: SMOKING CESSATION THERAPY
     Dosage: 1PAT PER DAY
     Route: 062
     Dates: start: 20080801, end: 20080101
  2. RESTORIL [Concomitant]
     Indication: INSOMNIA
  3. OXAZEPAM [Concomitant]
     Dates: end: 20080101
  4. MIRTAZAPINE [Concomitant]
     Dates: end: 20080101

REACTIONS (8)
  - ABDOMINAL DISTENSION [None]
  - ANOREXIA [None]
  - BREAST SWELLING [None]
  - BREAST TENDERNESS [None]
  - DYSURIA [None]
  - OEDEMA PERIPHERAL [None]
  - PAIN IN EXTREMITY [None]
  - SWELLING [None]
